FAERS Safety Report 23430030 (Version 2)
Quarter: 2024Q1

REPORT INFORMATION
  Report Type: Report from Study
  Country: SE (occurrence: SE)
  Receive Date: 20240122
  Receipt Date: 20240220
  Transmission Date: 20240410
  Serious: Yes (Death, Life-Threatening, Hospitalization, Other)
  Sender: FDA-Public Use
  Company Number: SE-ABBVIE-5601439

PATIENT
  Age: 72 Year
  Sex: Male
  Weight: 58 kg

DRUGS (7)
  1. CARBIDOPA\LEVODOPA [Suspect]
     Active Substance: CARBIDOPA\LEVODOPA
     Indication: Parkinson^s disease
     Dosage: THERAPY DURATION: REMAINED AT 16H
     Route: 050
     Dates: start: 20210111
  2. CARBIDOPA\LEVODOPA [Suspect]
     Active Substance: CARBIDOPA\LEVODOPA
  3. Madopark depot [Concomitant]
     Indication: Product used for unknown indication
     Dosage: 100 MG X 1
     Route: 048
  4. Betolvex [Concomitant]
     Indication: Product used for unknown indication
     Dosage: 1 MG?CYANOCOBALAMIN (BETOLVEX B12)
  5. FOLIC ACID [Concomitant]
     Active Substance: FOLIC ACID
     Indication: Product used for unknown indication
     Dosage: 1 MG? (B9 FOLSYRA)
  6. QUETIAPINE [Concomitant]
     Active Substance: QUETIAPINE
     Indication: Product used for unknown indication
     Dosage: 25 MG
  7. PRAMIPEXOLE [Concomitant]
     Active Substance: PRAMIPEXOLE\PRAMIPEXOLE DIHYDROCHLORIDE
     Indication: Product used for unknown indication
     Dosage: 0.52 MG

REACTIONS (13)
  - Renal vasculitis [Fatal]
  - Gastrointestinal haemorrhage [Unknown]
  - Oesophageal ulcer [Not Recovered/Not Resolved]
  - Cardiac arrest [Not Recovered/Not Resolved]
  - Renal failure [Fatal]
  - Epilepsy [Not Recovered/Not Resolved]
  - Cerebral disorder [Unknown]
  - Anaemia [Not Recovered/Not Resolved]
  - Bradycardia [Not Recovered/Not Resolved]
  - Pneumonia [Recovered/Resolved]
  - Influenza [Not Recovered/Not Resolved]
  - Helicobacter infection [Unknown]
  - Weight abnormal [Unknown]

NARRATIVE: CASE EVENT DATE: 20231129
